FAERS Safety Report 8977048 (Version 1)
Quarter: 2012Q4

REPORT INFORMATION
  Report Type: 
  Country: US (occurrence: US)
  Receive Date: 20121220
  Receipt Date: 20121220
  Transmission Date: 20130627
  Serious: No
  Sender: FDA-Public Use
  Company Number: US-VIIV HEALTHCARE LIMITED-A0973046A

PATIENT
  Sex: Male
  Weight: 87.3 kg

DRUGS (4)
  1. TRIZIVIR [Suspect]
     Indication: HIV INFECTION
     Dosage: 1TAB Twice per day
     Route: 048
     Dates: start: 1996
  2. HEART MEDICATION [Concomitant]
  3. PLAVIX [Concomitant]
  4. UNSPECIFIED MEDICATION [Concomitant]

REACTIONS (9)
  - Dyspnoea [Unknown]
  - Abdominal discomfort [Unknown]
  - Asthenia [Unknown]
  - Abdominal distension [Not Recovered/Not Resolved]
  - Anger [Not Recovered/Not Resolved]
  - Hyperhidrosis [Not Recovered/Not Resolved]
  - Cold sweat [Not Recovered/Not Resolved]
  - Panic attack [Unknown]
  - Adverse event [Unknown]
